FAERS Safety Report 9203784 (Version 1)
Quarter: 2013Q2

REPORT INFORMATION
  Report Type: Spontaneous
  Country: FR (occurrence: FR)
  Receive Date: 20130402
  Receipt Date: 20130402
  Transmission Date: 20140414
  Serious: Yes (Death, Other)
  Sender: FDA-Public Use
  Company Number: FR-009507513-1303FRA012446

PATIENT
  Age: 21 Year
  Sex: Female

DRUGS (2)
  1. VARNOLINE [Suspect]
     Indication: CONTRACEPTION
     Dosage: UNK
     Route: 048
     Dates: start: 20061128, end: 20070525
  2. PROZAC [Concomitant]
     Indication: DEPRESSION
     Dosage: UNK
     Dates: start: 200610

REACTIONS (28)
  - Dyspnoea exertional [Fatal]
  - Cardio-respiratory arrest [Fatal]
  - Multi-organ failure [Fatal]
  - Hypoxic-ischaemic encephalopathy [Fatal]
  - Pulmonary embolism [Fatal]
  - Fatigue [None]
  - Somnolence [None]
  - Musculoskeletal chest pain [None]
  - Bronchial disorder [None]
  - Pallor [None]
  - Lid sulcus deepened [None]
  - Pericardial disease [None]
  - Infection [None]
  - Agitation [None]
  - Presyncope [None]
  - Hepatomegaly [None]
  - Hepatic function abnormal [None]
  - Cardiac failure [None]
  - Metabolic acidosis [None]
  - Haemodynamic instability [None]
  - Anuria [None]
  - Hepatocellular injury [None]
  - Disseminated intravascular coagulation [None]
  - Ventricular failure [None]
  - Pleural effusion [None]
  - Ascites [None]
  - Gallbladder oedema [None]
  - Meningorrhagia [None]
